FAERS Safety Report 25295489 (Version 4)
Quarter: 2025Q3

REPORT INFORMATION
  Report Type: Spontaneous
  Country: US (occurrence: US)
  Receive Date: 20250511
  Receipt Date: 20250923
  Transmission Date: 20251021
  Serious: No
  Sender: SANOFI AVENTIS
  Company Number: US-SA-2025SA130118

PATIENT
  Age: 69 Year
  Sex: Female

DRUGS (2)
  1. DUPIXENT [Suspect]
     Active Substance: DUPILUMAB
     Indication: Asthma
     Route: 058
     Dates: start: 20250304, end: 20250304
  2. DUPIXENT [Suspect]
     Active Substance: DUPILUMAB
     Dosage: 300 MG, QOW
     Route: 058
     Dates: start: 202503, end: 202509

REACTIONS (12)
  - COVID-19 [Recovering/Resolving]
  - Fatigue [Recovering/Resolving]
  - Aphonia [Recovering/Resolving]
  - Ageusia [Recovering/Resolving]
  - Dyspnoea [Recovering/Resolving]
  - Dysphonia [Recovering/Resolving]
  - Nausea [Not Recovered/Not Resolved]
  - Taste disorder [Not Recovered/Not Resolved]
  - Headache [Not Recovered/Not Resolved]
  - Pyrexia [Not Recovered/Not Resolved]
  - Sinusitis [Unknown]
  - Asthma [Unknown]

NARRATIVE: CASE EVENT DATE: 20250101
